FAERS Safety Report 6878123-7 (Version None)
Quarter: 2010Q2

REPORT INFORMATION
  Report Type: 
  Country: None (occurrence: None)
  Receive Date: 20100616
  Receipt Date: 20100317
  Transmission Date: 20101027
  Serious: No
  Sender: FDA-Public Use
  Company Number: DSA_42812_2010

PATIENT
  Sex: Female

DRUGS (10)
  1. XENAZINE [Suspect]
     Indication: DRUG USE FOR UNKNOWN INDICATION
     Dosage: 12.5 MG QD ORAL
     Route: 048
     Dates: start: 20091217
  2. SEROQUEL [Concomitant]
  3. FLONASE [Concomitant]
  4. ATENOLOL [Concomitant]
  5. BENZTROPINE MESYLATE [Concomitant]
  6. AMBIEN [Concomitant]
  7. FLUOXETINE [Concomitant]
  8. MIRALAX [Concomitant]
  9. COLACE [Concomitant]
  10. OMEPRAZOLE [Concomitant]

REACTIONS (2)
  - STRESS [None]
  - TREMOR [None]
